FAERS Safety Report 6960201 (Version 2)
Quarter: 2012Q4

REPORT INFORMATION
  Report Type: Report from Study
  Country: GB (occurrence: US)
  Receive Date: 20090403
  Receipt Date: 20121221
  Transmission Date: 20130627
  Serious: Yes (Hospitalization)
  Sender: FDA-Public Use
  Company Number: US-BRISTOL-MYERS SQUIBB COMPANY-14570352

PATIENT
  Age: 57 Year
  Sex: Female
  Weight: 69.84 kg

DRUGS (6)
  1. IXEMPRA [Suspect]
     Indication: NON-SMALL CELL LUNG CANCER
     Dosage: Total no of courses to date = 1.
30mg/m2 Q3w
     Route: 065
     Dates: start: 20090306, end: 20090306
  2. CARBOPLATIN [Suspect]
     Indication: NON-SMALL CELL LUNG CANCER
     Dosage: Total no of courses to date = 1.
6AUC Q3w
     Route: 065
     Dates: start: 20090306, end: 20090306
  3. AVASTIN [Suspect]
     Indication: NON-SMALL CELL LUNG CANCER
     Dosage: Total no of courses to date = 1.
15mg/kg Q3w
     Route: 065
     Dates: start: 20090306, end: 20090306
  4. CHANTIX [Concomitant]
     Indication: TOBACCO USER
     Dates: start: 200902
  5. COMPAZINE [Concomitant]
     Indication: NAUSEA
     Dates: start: 20090311
  6. ADVAIR DISKUS [Concomitant]
     Dates: start: 200901

REACTIONS (2)
  - Atrial fibrillation [Recovered/Resolved with Sequelae]
  - Left ventricular dysfunction [Recovered/Resolved with Sequelae]
